FAERS Safety Report 4302487-1 (Version None)
Quarter: 2004Q1

REPORT INFORMATION
  Report Type: 
  Country: None (occurrence: None)
  Receive Date: 20040224
  Receipt Date: 20040218
  Transmission Date: 20041129
  Serious: Yes (Hospitalization)
  Sender: FDA-Public Use
  Company Number: FR-BRISTOL-MYERS SQUIBB COMPANY-12512893

PATIENT
  Age: 75 Year
  Sex: Female

DRUGS (2)
  1. COAPROVEL TABS 300MG/12.5MG [Suspect]
     Route: 048
  2. ATACAND [Concomitant]

REACTIONS (1)
  - DERMATITIS BULLOUS [None]
